FAERS Safety Report 11184262 (Version 3)
Quarter: 2015Q3

REPORT INFORMATION
  Report Type: Spontaneous
  Country: US (occurrence: US)
  Receive Date: 20150612
  Receipt Date: 20150713
  Transmission Date: 20151125
  Serious: Yes (Hospitalization, Other)
  Sender: FDA-Public Use
  Company Number: US-009507513-1506USA004443

PATIENT
  Age: 79 Year
  Sex: Female

DRUGS (2)
  1. FOSAMAX [Suspect]
     Active Substance: ALENDRONATE SODIUM
     Indication: BONE DENSITY DECREASED
     Dosage: UNK
     Route: 048
     Dates: start: 2005, end: 201412
  2. PROLIA [Suspect]
     Active Substance: DENOSUMAB
     Dosage: UNK, 2 X PER YEAR

REACTIONS (4)
  - Upper limb fracture [Recovering/Resolving]
  - Fall [Recovered/Resolved]
  - Femur fracture [Recovering/Resolving]
  - Bone density decreased [Unknown]

NARRATIVE: CASE EVENT DATE: 20150531
